FAERS Safety Report 24353107 (Version 2)
Quarter: 2025Q1

REPORT INFORMATION
  Report Type: Report from Study
  Country: US (occurrence: US)
  Receive Date: 20240923
  Receipt Date: 20250128
  Transmission Date: 20250409
  Serious: Yes (Hospitalization)
  Sender: EXELIXIS
  Company Number: US-EXELIXIS-EXL-2024-000295

PATIENT
  Age: 70 Year
  Sex: Female

DRUGS (13)
  1. CABOMETYX [Suspect]
     Active Substance: CABOZANTINIB S-MALATE
     Indication: Renal cancer
     Dosage: 20 MG, QD
     Route: 048
     Dates: start: 202408
  2. OPDIVO [Concomitant]
     Active Substance: NIVOLUMAB
  3. HYDRALAZINE [Concomitant]
     Active Substance: HYDRALAZINE HYDROCHLORIDE
  4. HYDROCORTISONE [Concomitant]
     Active Substance: HYDROCORTISONE
  5. IRON [Concomitant]
     Active Substance: IRON
  6. METFORMIN HYDROCHLORIDE [Concomitant]
     Active Substance: METFORMIN HYDROCHLORIDE
  7. OMEPRAZOLE [Concomitant]
     Active Substance: OMEPRAZOLE
  8. SIMVASTATIN [Concomitant]
     Active Substance: SIMVASTATIN
  9. ELIQUIS [Concomitant]
     Active Substance: APIXABAN
  10. LISINOPRIL [Concomitant]
     Active Substance: LISINOPRIL
  11. METOPROLOL TARTRATE [Concomitant]
     Active Substance: METOPROLOL TARTRATE
  12. MAGNESIUM [Concomitant]
     Active Substance: MAGNESIUM
  13. POTASSIUM CHLORIDE [Concomitant]
     Active Substance: POTASSIUM CHLORIDE

REACTIONS (11)
  - Fall [Unknown]
  - Rib fracture [Recovered/Resolved]
  - Decreased appetite [Not Recovered/Not Resolved]
  - Dysgeusia [Not Recovered/Not Resolved]
  - Weight decreased [Not Recovered/Not Resolved]
  - Stomatitis [Unknown]
  - Fatigue [Unknown]
  - Nausea [Unknown]
  - Skin exfoliation [Unknown]
  - Musculoskeletal discomfort [Unknown]
  - Pain [Unknown]

NARRATIVE: CASE EVENT DATE: 20240801
